FAERS Safety Report 17253759 (Version 3)
Quarter: 2020Q4

REPORT INFORMATION
  Report Type: Report from Study
  Country: FR (occurrence: FR)
  Receive Date: 20200109
  Receipt Date: 20201015
  Transmission Date: 20210113
  Serious: No
  Sender: FDA-Public Use
  Company Number: FR-SHIRE-FR202000663

PATIENT

DRUGS (33)
  1. TEDUGLUTIDE [Suspect]
     Active Substance: TEDUGLUTIDE
     Indication: SHORT-BOWEL SYNDROME
     Dosage: 3.6 MILLIGRAM (0.05 MG/ KG), OTHER
     Route: 065
     Dates: start: 20161004, end: 20161103
  2. TEDUGLUTIDE [Suspect]
     Active Substance: TEDUGLUTIDE
     Dosage: 3.8 MILLIGRAM (0.05 MG/ KG), OTHER
     Route: 065
     Dates: start: 20161104, end: 20161208
  3. TEDUGLUTIDE [Suspect]
     Active Substance: TEDUGLUTIDE
     Dosage: 3.4 MILLIGRAM (0.05 MG/ KG), OTHER
     Route: 065
     Dates: start: 20170404, end: 20171016
  4. TEDUGLUTIDE [Suspect]
     Active Substance: TEDUGLUTIDE
     Dosage: 3.6 MILLIGRAM (0.05 MG/ KG), OTHER
     Route: 065
     Dates: start: 20161209, end: 20170403
  5. L-THYROXINE [LEVOTHYROXINE] [Concomitant]
     Active Substance: LEVOTHYROXINE
     Indication: PRODUCT USED FOR UNKNOWN INDICATION
  6. TEDUGLUTIDE [Suspect]
     Active Substance: TEDUGLUTIDE
     Dosage: 3.8 MILLIGRAM (0.05 MG/ KG), OTHER
     Route: 065
     Dates: start: 20161104, end: 20161208
  7. TEDUGLUTIDE [Suspect]
     Active Substance: TEDUGLUTIDE
     Dosage: 3 MILLIGRAM (0.05 MG/ KG), OTHER
     Route: 065
     Dates: start: 20180130, end: 20180219
  8. TEDUGLUTIDE [Suspect]
     Active Substance: TEDUGLUTIDE
     Dosage: 3 MILLIGRAM (0.05 MG/ KG), OTHER
     Route: 065
     Dates: start: 20180130, end: 20180219
  9. TEDUGLUTIDE [Suspect]
     Active Substance: TEDUGLUTIDE
     Dosage: 3 MILLIGRAM (0.05 MG/ KG), OTHER
     Route: 065
     Dates: start: 20180308, end: 20180313
  10. TEDUGLUTIDE [Suspect]
     Active Substance: TEDUGLUTIDE
     Dosage: 3 MILLIGRAM (0.05 MG/ KG), OTHER
     Route: 065
     Dates: start: 20180130, end: 20180219
  11. TEDUGLUTIDE [Suspect]
     Active Substance: TEDUGLUTIDE
     Dosage: 3 MILLIGRAM (0.05 MG/ KG), OTHER
     Route: 065
     Dates: start: 20180130, end: 20180219
  12. TEDUGLUTIDE [Suspect]
     Active Substance: TEDUGLUTIDE
     Dosage: 3 MILLIGRAM (0.05 MG/ KG), OTHER
     Route: 065
     Dates: start: 20180308, end: 20180313
  13. TEDUGLUTIDE [Suspect]
     Active Substance: TEDUGLUTIDE
     Indication: SHORT-BOWEL SYNDROME
     Dosage: 3.6 MILLIGRAM (0.05 MG/ KG), OTHER
     Route: 065
     Dates: start: 20161004, end: 20161103
  14. TEDUGLUTIDE [Suspect]
     Active Substance: TEDUGLUTIDE
     Indication: SHORT-BOWEL SYNDROME
     Dosage: 3.6 MILLIGRAM (0.05 MG/ KG), OTHER
     Route: 065
     Dates: start: 20161004, end: 20161103
  15. TEDUGLUTIDE [Suspect]
     Active Substance: TEDUGLUTIDE
     Dosage: 3.8 MILLIGRAM (0.05 MG/ KG), OTHER
     Route: 065
     Dates: start: 20161104, end: 20161208
  16. TEDUGLUTIDE [Suspect]
     Active Substance: TEDUGLUTIDE
     Dosage: 3.6 MILLIGRAM (0.05 MG/ KG), OTHER
     Route: 065
     Dates: start: 20161209, end: 20170403
  17. TEDUGLUTIDE [Suspect]
     Active Substance: TEDUGLUTIDE
     Dosage: 3.6 MILLIGRAM (0.05 MG/ KG), OTHER
     Route: 065
     Dates: start: 20161209, end: 20170403
  18. TEDUGLUTIDE [Suspect]
     Active Substance: TEDUGLUTIDE
     Dosage: 3.2 MILLIGRAM (0.05 MG/ KG), OTHER
     Route: 065
     Dates: start: 20171017, end: 20180129
  19. TEDUGLUTIDE [Suspect]
     Active Substance: TEDUGLUTIDE
     Dosage: 3.2 MILLIGRAM (0.05 MG/ KG), OTHER
     Route: 065
     Dates: start: 20171017, end: 20180129
  20. INSULIN [Concomitant]
     Active Substance: INSULIN NOS
     Indication: HYPERKALAEMIA
  21. GLUCOSE [Concomitant]
     Active Substance: DEXTROSE
     Indication: HYPERKALAEMIA
  22. NACL [Concomitant]
     Active Substance: SODIUM CHLORIDE
     Indication: HYPONATRAEMIA
  23. TEDUGLUTIDE [Suspect]
     Active Substance: TEDUGLUTIDE
     Dosage: 3.8 MILLIGRAM (0.05 MG/ KG), OTHER
     Route: 065
     Dates: start: 20161104, end: 20161208
  24. TEDUGLUTIDE [Suspect]
     Active Substance: TEDUGLUTIDE
     Dosage: 3.4 MILLIGRAM (0.05 MG/ KG), OTHER
     Route: 065
     Dates: start: 20170404, end: 20171016
  25. TEDUGLUTIDE [Suspect]
     Active Substance: TEDUGLUTIDE
     Dosage: 3 MILLIGRAM (0.05 MG/ KG), OTHER
     Route: 065
     Dates: start: 20180308, end: 20180313
  26. LASILIX [FUROSEMIDE] [Concomitant]
     Active Substance: FUROSEMIDE
     Indication: HYPERKALAEMIA
  27. TEDUGLUTIDE [Suspect]
     Active Substance: TEDUGLUTIDE
     Indication: SHORT-BOWEL SYNDROME
     Dosage: 3.6 MILLIGRAM (0.05 MG/ KG), OTHER
     Route: 065
     Dates: start: 20161004, end: 20161103
  28. TEDUGLUTIDE [Suspect]
     Active Substance: TEDUGLUTIDE
     Dosage: 3.4 MILLIGRAM (0.05 MG/ KG), OTHER
     Route: 065
     Dates: start: 20170404, end: 20171016
  29. TEDUGLUTIDE [Suspect]
     Active Substance: TEDUGLUTIDE
     Dosage: 3.6 MILLIGRAM (0.05 MG/ KG), OTHER
     Route: 065
     Dates: start: 20161209, end: 20170403
  30. TEDUGLUTIDE [Suspect]
     Active Substance: TEDUGLUTIDE
     Dosage: 3.4 MILLIGRAM (0.05 MG/ KG), OTHER
     Route: 065
     Dates: start: 20170404, end: 20171016
  31. TEDUGLUTIDE [Suspect]
     Active Substance: TEDUGLUTIDE
     Dosage: 3.2 MILLIGRAM (0.05 MG/ KG), OTHER
     Route: 065
     Dates: start: 20171017, end: 20180129
  32. TEDUGLUTIDE [Suspect]
     Active Substance: TEDUGLUTIDE
     Dosage: 3.2 MILLIGRAM (0.05 MG/ KG), OTHER
     Route: 065
     Dates: start: 20171017, end: 20180129
  33. TEDUGLUTIDE [Suspect]
     Active Substance: TEDUGLUTIDE
     Dosage: 3 MILLIGRAM (0.05 MG/ KG), OTHER
     Route: 065
     Dates: start: 20180308, end: 20180313

REACTIONS (2)
  - Weight decreased [Recovered/Resolved]
  - Lung disorder [Recovered/Resolved]

NARRATIVE: CASE EVENT DATE: 20170301
